FAERS Safety Report 16942601 (Version 1)
Quarter: 2019Q4

REPORT INFORMATION
  Report Type: Spontaneous
  Country: US (occurrence: US)
  Receive Date: 20191021
  Receipt Date: 20191021
  Transmission Date: 20200122
  Serious: Yes (Hospitalization)
  Sender: FDA-Public Use
  Company Number: US-BEXIMCO-2019BEX00044

PATIENT
  Age: 70 Year
  Sex: Female

DRUGS (1)
  1. METFORMIN HYDROCHLORIDE. [Suspect]
     Active Substance: METFORMIN HYDROCHLORIDE
     Route: 065

REACTIONS (6)
  - Bradycardia [Recovered/Resolved]
  - Shock [Recovered/Resolved]
  - Tachypnoea [Recovered/Resolved]
  - Oliguria [Recovered/Resolved]
  - Lactic acidosis [Recovered/Resolved]
  - Encephalopathy [Recovered/Resolved]
